FAERS Safety Report 8804531 (Version 1)
Quarter: 2012Q4

REPORT INFORMATION
  Report Type: 
  Country: US (occurrence: US)
  Receive Date: 20120923
  Receipt Date: 20120923
  Transmission Date: 20130627
  Serious: No
  Sender: FDA-Public Use
  Company Number: US-009507513-1208USA008298

PATIENT
  Age: 29 Year
  Sex: Female
  Weight: 44.44 kg

DRUGS (3)
  1. NUVARING [Suspect]
     Indication: CONTRACEPTION
     Dosage: 0.120mg/0.015mg
     Route: 067
     Dates: start: 2010
  2. IBUPROFEN [Concomitant]
     Indication: PAIN
     Dosage: UNK, prn
  3. MONISTAT [Concomitant]
     Indication: PAIN
     Dosage: UNK, prn

REACTIONS (5)
  - Device difficult to use [Unknown]
  - Medical device discomfort [Unknown]
  - Fungal infection [Unknown]
  - Device breakage [Unknown]
  - Device expulsion [Unknown]
